FAERS Safety Report 6407126-1 (Version None)
Quarter: 2009Q4

REPORT INFORMATION
  Report Type: 
  Country: None (occurrence: None)
  Receive Date: 20091020
  Receipt Date: 20090916
  Transmission Date: 20100525
  Serious: No
  Sender: FDA-Public Use
  Company Number: US-BAYER-200914611BCC

PATIENT
  Age: 80 Year
  Sex: Male
  Weight: 98 kg

DRUGS (2)
  1. ALEVE [Suspect]
     Indication: ARTHRALGIA
     Dosage: TOOK 3 TO 4 GELCAP.
     Route: 048
     Dates: start: 20090913
  2. ATENOLOL [Concomitant]
     Route: 065

REACTIONS (2)
  - ARTHRITIS [None]
  - PARAESTHESIA [None]
